FAERS Safety Report 7429439-7 (Version None)
Quarter: 2011Q2

REPORT INFORMATION
  Report Type: 
  Country: None (occurrence: None)
  Receive Date: 20110421
  Receipt Date: 20110413
  Transmission Date: 20111010
  Serious: Yes (Death, Hospitalization)
  Sender: FDA-Public Use
  Company Number: AT-PFIZER INC-2011076740

PATIENT
  Age: 64 Year
  Sex: Male
  Weight: 57 kg

DRUGS (5)
  1. FOLINIC ACID [Suspect]
     Indication: COLORECTAL CANCER METASTATIC
     Dosage: 700 MG/M2, CYCLIC EVERY TWO WEEKS
     Route: 042
     Dates: start: 20110328, end: 20110328
  2. IRINOTECAN HCL [Suspect]
     Indication: COLORECTAL CANCER METASTATIC
     Dosage: 315 MG/M2, CYCLIC, EVERY TWO WEEKS
     Route: 042
     Dates: start: 20110328, end: 20110328
  3. BEVACIZUMAB [Suspect]
     Indication: COLORECTAL CANCER METASTATIC
     Dosage: 310 MG/M2, CYCLIC, EVERY TWO WEEKS
     Route: 042
     Dates: start: 20110328, end: 20110328
  4. FLUOROURACIL [Suspect]
     Dosage: 700 MG/M2, EVERY TWO WEEKS
     Route: 042
  5. FLUOROURACIL [Suspect]
     Indication: COLORECTAL CANCER METASTATIC
     Dosage: 4200 MG/M2, SINGLE
     Route: 042
     Dates: start: 20110328, end: 20110330

REACTIONS (4)
  - MUCOSAL INFLAMMATION [None]
  - PNEUMONIA [None]
  - SEPSIS [None]
  - LEUKOPENIA [None]
